FAERS Safety Report 25363649 (Version 1)
Quarter: 2025Q2

REPORT INFORMATION
  Report Type: Spontaneous
  Country: US (occurrence: None)
  Receive Date: 20250523
  Receipt Date: 20250523
  Transmission Date: 20250717
  Serious: Yes (Hospitalization)
  Sender: FDA-CTU
  Company Number: None

PATIENT
  Sex: Female
  Weight: 76.5 kg

DRUGS (3)
  1. TADALAFIL [Suspect]
     Active Substance: TADALAFIL
     Indication: Pulmonary arterial hypertension
     Dosage: 40 MG DAILY ORAL ?
     Route: 048
     Dates: start: 20210406
  2. WINREVAIR [Suspect]
     Active Substance: SOTATERCEPT-CSRK
  3. OPSUMIT [Suspect]
     Active Substance: MACITENTAN

REACTIONS (3)
  - Blood test abnormal [None]
  - Pulmonary arterial hypertension [None]
  - Condition aggravated [None]
